FAERS Safety Report 24067740 (Version 1)
Quarter: 2024Q3

REPORT INFORMATION
  Report Type: Spontaneous
  Country: CA (occurrence: CA)
  Receive Date: 20240710
  Receipt Date: 20240710
  Transmission Date: 20241017
  Serious: Yes (Other)
  Sender: ABBVIE
  Company Number: CA-ABBVIE-5831509

PATIENT
  Age: 53 Year
  Sex: Female

DRUGS (2)
  1. HUMIRA [Suspect]
     Active Substance: ADALIMUMAB
     Indication: Product used for unknown indication
     Route: 058
  2. HYRIMOZ [Suspect]
     Active Substance: ADALIMUMAB-ADAZ
     Indication: Crohn^s disease
     Route: 058

REACTIONS (8)
  - Diarrhoea [Unknown]
  - Drug effect less than expected [Unknown]
  - Aphthous ulcer [Unknown]
  - General physical health deterioration [Unknown]
  - Pseudopolyp [Unknown]
  - Abscess jaw [Unknown]
  - Off label use [Unknown]
  - Colitis ulcerative [Unknown]
